FAERS Safety Report 18113457 (Version 5)
Quarter: 2023Q2

REPORT INFORMATION
  Report Type: Spontaneous
  Country: US (occurrence: US)
  Receive Date: 20200805
  Receipt Date: 20230615
  Transmission Date: 20230722
  Serious: Yes (Other)
  Sender: FDA-Public Use
  Company Number: US-PFIZER INC-2020296194

PATIENT
  Age: 75 Year
  Sex: Female
  Weight: 67.13 kg

DRUGS (3)
  1. IBRANCE [Suspect]
     Active Substance: PALBOCICLIB
     Indication: Breast cancer female
     Dosage: 100 MG
     Dates: start: 201911
  2. IBRANCE [Suspect]
     Active Substance: PALBOCICLIB
     Dosage: 75 MG, DAILY
     Route: 048
     Dates: start: 2020
  3. IBRANCE [Suspect]
     Active Substance: PALBOCICLIB
     Dosage: 75 MG
     Dates: start: 20221222

REACTIONS (5)
  - Cerebrovascular accident [Unknown]
  - Peripheral swelling [Unknown]
  - Dysgraphia [Unknown]
  - Alopecia [Unknown]
  - Dysphonia [Unknown]

NARRATIVE: CASE EVENT DATE: 20200101
